FAERS Safety Report 16450063 (Version 1)
Quarter: 2019Q3

REPORT INFORMATION
  Report Type: Spontaneous
  Country: US (occurrence: US)
  Receive Date: 20190618
  Receipt Date: 20190618
  Transmission Date: 20191004
  Serious: No
  Sender: FDA-Public Use
  Company Number: None

PATIENT
  Age: 39 Year
  Weight: 68.85 kg

DRUGS (1)
  1. INJECTAFER [Suspect]
     Active Substance: FERRIC CARBOXYMALTOSE
     Indication: IRON DEFICIENCY ANAEMIA
     Dosage: ?          QUANTITY:1 VIAL;?
     Route: 042
     Dates: start: 20190608, end: 20190608

REACTIONS (6)
  - Hypersensitivity [None]
  - Chest discomfort [None]
  - Dyspnoea [None]
  - Influenza like illness [None]
  - Hypophosphataemia [None]
  - Feeling abnormal [None]

NARRATIVE: CASE EVENT DATE: 20190608
